FAERS Safety Report 6601702-9 (Version None)
Quarter: 2010Q1

REPORT INFORMATION
  Report Type: 
  Country: None (occurrence: None)
  Receive Date: 20100225
  Receipt Date: 20100224
  Transmission Date: 20100710
  Serious: Yes (Other)
  Sender: FDA-Public Use
  Company Number: CA-ROCHE-687082

PATIENT
  Sex: Female

DRUGS (2)
  1. PEG-INTERFERON ALFA 2A (RO 25-8310) [Suspect]
     Indication: HEPATITIS C
     Route: 058
     Dates: start: 20090722, end: 20100201
  2. RIBAVIRIN [Suspect]
     Indication: HEPATITIS C
     Dosage: DOSING REGIMEN: 200 MG AM AND 200 MG PM
     Route: 048
     Dates: start: 20090722, end: 20100218

REACTIONS (2)
  - CONVULSION [None]
  - DIABETES MELLITUS [None]
